FAERS Safety Report 6151865-7 (Version None)
Quarter: 2009Q2

REPORT INFORMATION
  Report Type: 
  Country: None (occurrence: None)
  Receive Date: 20090410
  Receipt Date: 20090406
  Transmission Date: 20091009
  Serious: Yes (Death, Life-Threatening)
  Sender: FDA-Public Use
  Company Number: GB-CELGENEUS-167-C5013-09020821

PATIENT
  Sex: Female

DRUGS (13)
  1. CC-5013 [Suspect]
     Indication: MYELODYSPLASTIC SYNDROME
     Route: 048
     Dates: start: 20060111, end: 20070227
  2. CC-5013 [Suspect]
     Route: 048
     Dates: start: 20070228, end: 20070927
  3. CC-5013 [Suspect]
     Route: 048
     Dates: start: 20071010, end: 20071014
  4. LACTULOSE [Concomitant]
     Indication: CONSTIPATION
     Route: 048
     Dates: start: 20060201, end: 20060215
  5. LACTULOSE [Concomitant]
     Route: 048
     Dates: start: 20060301
  6. ADCAL D3 [Concomitant]
     Indication: VITAMIN D DEFICIENCY
     Route: 048
     Dates: start: 20050101
  7. RANITIDINE [Concomitant]
     Route: 048
     Dates: start: 20050101
  8. PARACETAMOL [Concomitant]
     Indication: PAIN
     Route: 048
     Dates: start: 20060201
  9. SENNA [Concomitant]
     Indication: CONSTIPATION
     Route: 048
     Dates: start: 20060301
  10. LANSOPRAZOLE [Concomitant]
     Route: 048
     Dates: start: 20060301
  11. GAVISCON [Concomitant]
     Route: 048
     Dates: start: 20060201
  12. DIHYDROCODEINE BITARTRATE INJ [Concomitant]
     Indication: PAIN
     Route: 048
     Dates: start: 20070301
  13. BALSALAZIDE [Concomitant]
     Route: 048
     Dates: start: 20050101

REACTIONS (2)
  - ACUTE MYELOID LEUKAEMIA [None]
  - MYELODYSPLASTIC SYNDROME TRANSFORMATION [None]
